FAERS Safety Report 18183975 (Version 1)
Quarter: 2020Q3

REPORT INFORMATION
  Report Type: Report from Study
  Country: None (occurrence: CA)
  Receive Date: 20200823
  Receipt Date: 20200823
  Transmission Date: 20201103
  Serious: Yes (Death, Hospitalization)
  Sender: FDA-Public Use
  Company Number: CA-HLS-202001096

PATIENT
  Age: 70 Year
  Sex: Male

DRUGS (6)
  1. RIVASTIGMINE. [Concomitant]
     Active Substance: RIVASTIGMINE
     Route: 065
  2. LEVODOPA?CARBIDOPA [Concomitant]
     Active Substance: CARBIDOPA\LEVODOPA
     Route: 065
  3. MIDODRINE [Concomitant]
     Active Substance: MIDODRINE
     Route: 065
  4. DOMPERIDONE [Concomitant]
     Active Substance: DOMPERIDONE
     Route: 065
  5. SERTRALINE [Concomitant]
     Active Substance: SERTRALINE HYDROCHLORIDE
     Route: 065
  6. CLOZARIL [Suspect]
     Active Substance: CLOZAPINE
     Indication: PSYCHOTIC SYMPTOM
     Route: 048

REACTIONS (1)
  - Pyelonephritis acute [Fatal]
